FAERS Safety Report 15602703 (Version 1)
Quarter: 2018Q4

REPORT INFORMATION
  Report Type: Spontaneous
  Country: US (occurrence: US)
  Receive Date: 20181109
  Receipt Date: 20181109
  Transmission Date: 20190205
  Serious: No
  Sender: FDA-Public Use
  Company Number: US-SA-2018SA306903

PATIENT
  Age: 73 Year
  Sex: Female

DRUGS (1)
  1. ALLEGRA ALLERGY [Suspect]
     Active Substance: FEXOFENADINE HYDROCHLORIDE
     Indication: HYPERSENSITIVITY
     Dosage: SHE HAS BEEN USING THE PRODUCT FOR 1 MONTH
     Route: 065

REACTIONS (2)
  - Muscle spasms [Unknown]
  - Eye disorder [Unknown]
